FAERS Safety Report 15312598 (Version 1)
Quarter: 2018Q3

REPORT INFORMATION
  Report Type: Spontaneous
  Country: US (occurrence: US)
  Receive Date: 20180823
  Receipt Date: 20180823
  Transmission Date: 20181010
  Serious: No
  Sender: FDA-Public Use
  Company Number: US-SHIRE-US201832578

PATIENT
  Sex: Female

DRUGS (1)
  1. XIIDRA [Suspect]
     Active Substance: LIFITEGRAST
     Indication: DRY EYE
     Dosage: 1 GTT, 2X/DAY:BID
     Route: 047
     Dates: start: 201808, end: 201808

REACTIONS (5)
  - Migraine [Unknown]
  - Panic attack [Unknown]
  - Headache [Unknown]
  - Hypersensitivity [Unknown]
  - Head discomfort [Unknown]

NARRATIVE: CASE EVENT DATE: 201808
